FAERS Safety Report 16916687 (Version 2)
Quarter: 2019Q4

REPORT INFORMATION
  Report Type: Spontaneous
  Country: PL (occurrence: PL)
  Receive Date: 20191015
  Receipt Date: 20191129
  Transmission Date: 20200122
  Serious: Yes (Other)
  Sender: FDA-Public Use
  Company Number: PL-ROCHE-2438986

PATIENT
  Age: 61 Year
  Sex: Male
  Weight: 86 kg

DRUGS (5)
  1. ZOCOR [Suspect]
     Active Substance: SIMVASTATIN
     Indication: PRODUCT USED FOR UNKNOWN INDICATION
     Route: 065
  2. ROACTEMRA [Suspect]
     Active Substance: TOCILIZUMAB
     Indication: RHEUMATOID ARTHRITIS
     Route: 058
     Dates: start: 20180710, end: 201910
  3. ENCORTON [PREDNISONE] [Concomitant]
     Active Substance: PREDNISONE
     Route: 065
  4. RISENDROS [Concomitant]
     Route: 065
  5. DOXAR [DOXAZOSIN MESILATE] [Concomitant]
     Route: 065

REACTIONS (1)
  - Platelet count increased [Not Recovered/Not Resolved]
